FAERS Safety Report 15188641 (Version 2)
Quarter: 2019Q3

REPORT INFORMATION
  Report Type: Spontaneous
  Country: US (occurrence: US)
  Receive Date: 20180724
  Receipt Date: 20190711
  Transmission Date: 20191004
  Serious: No
  Sender: FDA-Public Use
  Company Number: US-PFIZER INC-2018296089

PATIENT
  Age: 76 Year
  Sex: Female

DRUGS (2)
  1. XELJANZ XR [Suspect]
     Active Substance: TOFACITINIB CITRATE
     Indication: PSORIATIC ARTHROPATHY
     Dosage: 11 MG, 1X/DAY
     Route: 048
     Dates: start: 20180525
  2. FORTEO [Concomitant]
     Active Substance: TERIPARATIDE
     Dosage: UNK

REACTIONS (9)
  - Hypotension [Unknown]
  - Pyrexia [Unknown]
  - Headache [Unknown]
  - Ageusia [Unknown]
  - Alopecia [Unknown]
  - Weight decreased [Unknown]
  - Palpitations [Unknown]
  - Thyroid function test abnormal [Unknown]
  - Malaise [Unknown]
